FAERS Safety Report 8465623-1 (Version None)
Quarter: 2012Q2

REPORT INFORMATION
  Report Type: 
  Country: None (occurrence: None)
  Receive Date: 20120621
  Receipt Date: 20120621
  Transmission Date: 20120825
  Serious: Yes (Hospitalization)
  Sender: FDA-Public Use
  Company Number: None

PATIENT
  Age: 65 Year
  Sex: Male
  Weight: 98.2 kg

DRUGS (1)
  1. ACETAMINOPHEN/HYDROCODONE BITARTRATE [Suspect]
     Indication: PAIN
     Dosage: 1 TAB TID PO
     Route: 048
     Dates: start: 20120208, end: 20120619

REACTIONS (6)
  - ENCEPHALOPATHY [None]
  - MENTAL STATUS CHANGES [None]
  - CONFUSIONAL STATE [None]
  - OVERDOSE [None]
  - SEDATION [None]
  - ALCOHOL USE [None]
